FAERS Safety Report 18023400 (Version 2)
Quarter: 2020Q3

REPORT INFORMATION
  Report Type: Spontaneous
  Country: US (occurrence: US)
  Receive Date: 20200715
  Receipt Date: 20200811
  Transmission Date: 20201103
  Serious: Yes (Hospitalization)
  Sender: FDA-Public Use
  Company Number: US-009507513-2007USA003398

PATIENT
  Age: 53 Year
  Sex: Male

DRUGS (1)
  1. KEYTRUDA [Suspect]
     Active Substance: PEMBROLIZUMAB
     Indication: METASTATIC MALIGNANT MELANOMA
     Dosage: TWO ADMINISTRATIONS OF PEMBROLIZUMAB 8 AND 2 WEEKS PRIOR TO PRESENTATION

REACTIONS (3)
  - Allergic sinusitis [Recovered/Resolved]
  - Sinusitis fungal [Recovered/Resolved]
  - Inappropriate schedule of product administration [Unknown]
